FAERS Safety Report 23079797 (Version 1)
Quarter: 2023Q4

REPORT INFORMATION
  Report Type: Spontaneous
  Country: US (occurrence: US)
  Receive Date: 20231018
  Receipt Date: 20231018
  Transmission Date: 20240110
  Serious: No
  Sender: FDA-Public Use
  Company Number: US-PFIZER INC-202300329729

PATIENT
  Age: 62 Year
  Sex: Female

DRUGS (13)
  1. PAXLOVID [Suspect]
     Active Substance: NIRMATRELVIR\RITONAVIR
     Indication: COVID-19 treatment
     Dosage: UNK
     Dates: start: 20231004, end: 20231009
  2. LEVOTHYROXINE [Concomitant]
     Active Substance: LEVOTHYROXINE
  3. MOTEGRITY [Concomitant]
     Active Substance: PRUCALOPRIDE SUCCINATE
  4. FEMDOPHILLUS [Concomitant]
  5. ATORVASTATIN [Concomitant]
     Active Substance: ATORVASTATIN
  6. LISINOPRIL [Concomitant]
     Active Substance: LISINOPRIL
  7. ALGAE CALCIUM [Concomitant]
  8. METHYLCOBALAMIN [Concomitant]
     Active Substance: METHYLCOBALAMIN
  9. ACACIA FIBER [Concomitant]
  10. CELLULOSE FIBER [Concomitant]
  11. COSENTYX [Concomitant]
     Active Substance: SECUKINUMAB
  12. HYDROCORTISONE [Concomitant]
     Active Substance: HYDROCORTISONE
  13. TOPICAL [CLOBETASOL PROPIONATE] [Concomitant]
     Indication: Psoriasis

REACTIONS (2)
  - COVID-19 [Recovering/Resolving]
  - Disease recurrence [Recovering/Resolving]

NARRATIVE: CASE EVENT DATE: 20231011
